FAERS Safety Report 8847956 (Version 1)
Quarter: 2012Q4

REPORT INFORMATION
  Report Type: 
  Country: US (occurrence: US)
  Receive Date: 20121018
  Receipt Date: 20121018
  Transmission Date: 20130627
  Serious: Yes (Other)
  Sender: FDA-Public Use
  Company Number: US-ROCHE-GNE095142

PATIENT
  Age: 14 Year
  Sex: Male

DRUGS (1)
  1. NUTROPIN AQ [Suspect]
     Indication: DWARFISM
     Route: 058
     Dates: start: 20000103, end: 20000314

REACTIONS (5)
  - Intracranial pressure increased [Unknown]
  - Psychomotor hyperactivity [Unknown]
  - Brain neoplasm [Unknown]
  - Headache [Unknown]
  - Intracranial pressure increased [Unknown]
